FAERS Safety Report 24755394 (Version 1)
Quarter: 2024Q4

REPORT INFORMATION
  Report Type: Spontaneous
  Country: US (occurrence: US)
  Receive Date: 20241219
  Receipt Date: 20241219
  Transmission Date: 20250114
  Serious: No
  Sender: PERRIGO
  Company Number: US-PERRIGO-24US008991

PATIENT

DRUGS (1)
  1. NASONEX [Suspect]
     Active Substance: MOMETASONE FUROATE
     Indication: Product used for unknown indication
     Dosage: UNKNOWN, UNKNOWN
     Route: 045

REACTIONS (1)
  - Nasal congestion [Unknown]
